FAERS Safety Report 4484005-0 (Version None)
Quarter: 2004Q4

REPORT INFORMATION
  Report Type: 
  Country: None (occurrence: None)
  Receive Date: 20041025
  Receipt Date: 20040908
  Transmission Date: 20050328
  Serious: Yes (Congenital Anomaly, Other)
  Sender: FDA-Public Use
  Company Number: JP-MERCK-0409USA01126

PATIENT
  Age: 0 Day
  Sex: Female
  Weight: 1 kg

DRUGS (7)
  1. INDOCIN [Suspect]
     Indication: PREMATURE LABOUR
     Dates: start: 20040115, end: 20040116
  2. OXICONAZOLE NITRATE [Concomitant]
     Indication: PREMATURE LABOUR
  3. UTEMERIN [Concomitant]
     Indication: PREMATURE LABOUR
     Dates: start: 20040115
  4. [THERAPY UNSPECIFIED] [Concomitant]
     Indication: PREMATURE LABOUR
     Dates: start: 20040116
  5. RINDERON-A [Concomitant]
     Dates: start: 20040118
  6. FLUMARIN [Concomitant]
     Indication: INTRAUTERINE INFECTION
     Dates: start: 20040115
  7. UTEMERIN [Concomitant]
     Dates: start: 20040109

REACTIONS (8)
  - APGAR SCORE LOW [None]
  - CONGENITAL ANOMALY [None]
  - DRUG EXPOSURE DURING PREGNANCY [None]
  - LARGE INTESTINE PERFORATION [None]
  - MECONIUM PERITONITIS [None]
  - PLATELET COUNT DECREASED [None]
  - PREMATURE BABY [None]
  - WHITE BLOOD CELL COUNT DECREASED [None]
